FAERS Safety Report 10159971 (Version 1)
Quarter: 2014Q2

REPORT INFORMATION
  Report Type: Spontaneous
  Country: US (occurrence: US)
  Receive Date: 20140508
  Receipt Date: 20140508
  Transmission Date: 20141212
  Serious: Yes (Other)
  Sender: FDA-Public Use
  Company Number: US-SA-2014SA057527

PATIENT
  Age: 87 Year
  Sex: Male

DRUGS (2)
  1. LOVENOX [Suspect]
     Indication: PRODUCT USED FOR UNKNOWN INDICATION
     Dosage: AT 8AM AND 8PM
     Route: 065
  2. WARFARIN [Concomitant]

REACTIONS (2)
  - Tongue neoplasm malignant stage unspecified [Unknown]
  - Drug dose omission [Unknown]
